FAERS Safety Report 18963034 (Version 1)
Quarter: 2021Q1

REPORT INFORMATION
  Report Type: Spontaneous
  Country: KR (occurrence: KR)
  Receive Date: 20210303
  Receipt Date: 20210303
  Transmission Date: 20210420
  Serious: Yes (Other)
  Sender: FDA-Public Use
  Company Number: KR-SA-2021SA067331

PATIENT
  Sex: Female

DRUGS (1)
  1. HARNAL [Suspect]
     Active Substance: TAMSULOSIN HYDROCHLORIDE
     Indication: PRODUCT USED FOR UNKNOWN INDICATION
     Dosage: 0.2 MG, TWICE DAILY (MORNING AND EVENING)
     Route: 065

REACTIONS (4)
  - Product use issue [Unknown]
  - Urinary retention [Unknown]
  - Dysuria [Unknown]
  - Drug ineffective [Unknown]
